FAERS Safety Report 6446401-1 (Version None)
Quarter: 2009Q4

REPORT INFORMATION
  Report Type: 
  Country: None (occurrence: None)
  Receive Date: 20091116
  Receipt Date: 20091102
  Transmission Date: 20100525
  Serious: No
  Sender: FDA-Public Use
  Company Number: 2009110017

PATIENT
  Age: 79 Year
  Sex: Male

DRUGS (1)
  1. ONSOLIS [Suspect]
     Dosage: BU
     Route: 002

REACTIONS (1)
  - INTERCEPTED MEDICATION ERROR [None]
